FAERS Safety Report 7821315-0 (Version None)
Quarter: 2011Q4

REPORT INFORMATION
  Report Type: 
  Country: None (occurrence: None)
  Receive Date: 20111018
  Receipt Date: 20110805
  Transmission Date: 20120403
  Serious: No
  Sender: FDA-Public Use
  Company Number: US-ASTRAZENECA-2011SE42414

PATIENT
  Age: 64 Year
  Sex: Male
  Weight: 65.3 kg

DRUGS (2)
  1. SYMBICORT [Suspect]
     Route: 055
  2. LISINOPRIL [Concomitant]
     Indication: HYPERTENSION

REACTIONS (1)
  - CHEST PAIN [None]
